FAERS Safety Report 8246537-9 (Version None)
Quarter: 2012Q1

REPORT INFORMATION
  Report Type: 
  Country: None (occurrence: None)
  Receive Date: 20120330
  Receipt Date: 20120319
  Transmission Date: 20120608
  Serious: Yes (Hospitalization)
  Sender: FDA-Public Use
  Company Number: FR-BRISTOL-MYERS SQUIBB COMPANY-16480220

PATIENT
  Age: 58 Year
  Sex: Male
  Weight: 70 kg

DRUGS (3)
  1. CISPLATIN [Suspect]
     Indication: HEAD AND NECK CANCER
     Dosage: MOST RECENT INFUSION:28FEB2011.
     Dates: start: 20110117
  2. DOCETAXEL [Suspect]
     Indication: HEAD AND NECK CANCER
     Dosage: 21 DAY CYCLES,MOST RECENT INFUSION:28FEB2011.
     Dates: start: 20110117
  3. CETUXIMAB [Suspect]
     Indication: HEAD AND NECK CANCER
     Dosage: 1 PER CYCLE, MOST RECENT INFUSION:14MAR2011.
     Dates: start: 20110117

REACTIONS (14)
  - HYPOCALCAEMIA [None]
  - SYSTEMIC INFLAMMATORY RESPONSE SYNDROME [None]
  - PRESYNCOPE [None]
  - BLOOD ELECTROLYTES DECREASED [None]
  - PSEUDOMONAS TEST POSITIVE [None]
  - LUNG HYPERINFLATION [None]
  - HYPOKALAEMIA [None]
  - LABORATORY TEST INTERFERENCE [None]
  - WHITE BLOOD CELL COUNT INCREASED [None]
  - PNEUMOTHORAX [None]
  - HYPONATRAEMIA [None]
  - LUNG NEOPLASM [None]
  - HYPOMAGNESAEMIA [None]
  - HYPOTHERMIA [None]
